FAERS Safety Report 9916240 (Version 2)
Quarter: 2014Q1

REPORT INFORMATION
  Report Type: Spontaneous
  Country: US (occurrence: US)
  Receive Date: 20140221
  Receipt Date: 20140221
  Transmission Date: 20141002
  Serious: Yes (Disabling)
  Sender: FDA-Public Use
  Company Number: US-GE HEALTHCARE MEDICAL DIAGNOSTICS-OSCN-PR-0901S-0003

PATIENT
  Age: 66 Year
  Sex: Male
  Weight: 75 kg

DRUGS (10)
  1. OMNISCAN [Suspect]
     Indication: METASTASES TO CENTRAL NERVOUS SYSTEM
     Route: 042
     Dates: start: 20050125, end: 20050125
  2. OMNISCAN [Suspect]
     Indication: DIZZINESS
     Route: 042
     Dates: start: 20050930, end: 20050930
  3. OMNISCAN [Suspect]
     Indication: ATAXIA
  4. GADOLINIUM (UNSPECIFIED) [Suspect]
     Indication: PRODUCT USED FOR UNKNOWN INDICATION
     Dates: start: 19990507, end: 19990507
  5. GADOLINIUM (UNSPECIFIED) [Suspect]
     Indication: JOINT DISLOCATION
     Dates: start: 20050124, end: 20050124
  6. GADOLINIUM (UNSPECIFIED) [Suspect]
     Indication: PRODUCT USED FOR UNKNOWN INDICATION
     Dates: start: 20070710, end: 20070710
  7. MAGNEVIST [Suspect]
     Indication: CONVULSION
     Dates: start: 20050928, end: 20050928
  8. MAGNEVIST [Suspect]
     Indication: CONVULSION
     Dates: start: 20051221, end: 20051221
  9. MAGNEVIST [Suspect]
     Indication: CONVULSION
     Dates: start: 20060316, end: 20060316
  10. MAGNEVIST [Suspect]
     Indication: CONFUSIONAL STATE
     Dates: start: 20061013, end: 20061013

REACTIONS (1)
  - Nephrogenic systemic fibrosis [Not Recovered/Not Resolved]
